FAERS Safety Report 5605146-8 (Version None)
Quarter: 2008Q1

REPORT INFORMATION
  Report Type: 
  Country: None (occurrence: None)
  Receive Date: 20080123
  Receipt Date: 20020604
  Transmission Date: 20080703
  Serious: Yes (Hospitalization)
  Sender: FDA-Public Use
  Company Number: US022263

PATIENT
  Age: 1 Day
  Sex: Male

DRUGS (2)
  1. PROVIGIL [Suspect]
     Dosage: 200 MG QD TRANSPLACENTAL
     Route: 064
     Dates: start: 20010726, end: 20010822
  2. FOLIC ACID [Concomitant]

REACTIONS (6)
  - C-REACTIVE PROTEIN INCREASED [None]
  - DRUG EXPOSURE DURING PREGNANCY [None]
  - NEONATAL DISORDER [None]
  - RED BLOOD CELL COUNT INCREASED [None]
  - SEPSIS NEONATAL [None]
  - WHITE BLOOD CELL COUNT INCREASED [None]
